FAERS Safety Report 19152992 (Version 1)
Quarter: 2021Q2

REPORT INFORMATION
  Report Type: Spontaneous
  Country: US (occurrence: US)
  Receive Date: 20210419
  Receipt Date: 20210419
  Transmission Date: 20210717
  Serious: Yes (Other)
  Sender: FDA-Public Use
  Company Number: US-STRIDES ARCOLAB LIMITED-2021SP004329

PATIENT
  Age: 37 Year
  Sex: Male

DRUGS (2)
  1. PAMIDRONATE [Concomitant]
     Active Substance: PAMIDRONATE DISODIUM
     Indication: OSTEOPOROSIS PROPHYLAXIS
     Dosage: 30 MILLIGRAM
     Route: 042
  2. PREDNISOLONE. [Suspect]
     Active Substance: PREDNISOLONE
     Indication: HEART TRANSPLANT
     Dosage: UNK, LONG TERM
     Route: 065

REACTIONS (1)
  - Osteopenia [Unknown]
